FAERS Safety Report 13488101 (Version 1)
Quarter: 2017Q2

REPORT INFORMATION
  Report Type: Spontaneous
  Country: US (occurrence: US)
  Receive Date: 20170426
  Receipt Date: 20170426
  Transmission Date: 20170830
  Serious: No
  Sender: FDA-Public Use
  Company Number: US-ALKERMES INC.-ALK-2016-002598

PATIENT
  Age: 25 Year
  Sex: Male
  Weight: 79.37 kg

DRUGS (1)
  1. VIVITROL [Suspect]
     Active Substance: NALTREXONE
     Indication: DRUG USE DISORDER
     Dosage: 380 MG, QMO
     Route: 030
     Dates: start: 20160728

REACTIONS (14)
  - Feeling hot [Unknown]
  - Depression [Unknown]
  - Alcohol use [Unknown]
  - Dissociation [Unknown]
  - Hypotension [Unknown]
  - Hot flush [Unknown]
  - Bowel movement irregularity [Not Recovered/Not Resolved]
  - Suicidal ideation [Not Recovered/Not Resolved]
  - Feeling abnormal [Unknown]
  - Paraesthesia [Not Recovered/Not Resolved]
  - Mental impairment [Unknown]
  - Anxiety [Unknown]
  - Hypoacusis [Not Recovered/Not Resolved]
  - Panic attack [Unknown]

NARRATIVE: CASE EVENT DATE: 2016
